FAERS Safety Report 5818640-1 (Version None)
Quarter: 2008Q3

REPORT INFORMATION
  Report Type: 
  Country: None (occurrence: None)
  Receive Date: 20080717
  Receipt Date: 20080717
  Transmission Date: 20090109
  Serious: Yes (Hospitalization, Other)
  Sender: FDA-Public Use
  Company Number: None

PATIENT
  Age: 60 Year
  Sex: Female
  Weight: 68.0396 kg

DRUGS (2)
  1. SEROQUEL [Suspect]
     Indication: DEPRESSION
     Dosage: 150 MG. ONCE NIGHTTIME
     Dates: start: 20070711, end: 20080710
  2. SEROQUEL [Suspect]
     Indication: MENTAL DISORDER
     Dosage: 150 MG. ONCE NIGHTTIME
     Dates: start: 20070711, end: 20080710

REACTIONS (9)
  - BALANCE DISORDER [None]
  - CONFUSIONAL STATE [None]
  - DYSARTHRIA [None]
  - LETHARGY [None]
  - PHARYNGEAL OEDEMA [None]
  - PHOTOSENSITIVITY REACTION [None]
  - SWOLLEN TONGUE [None]
  - THROAT IRRITATION [None]
  - VISUAL IMPAIRMENT [None]
